FAERS Safety Report 8244632-1 (Version None)
Quarter: 2012Q1

REPORT INFORMATION
  Report Type: 
  Country: None (occurrence: None)
  Receive Date: 20120329
  Receipt Date: 20111213
  Transmission Date: 20120608
  Serious: No
  Sender: FDA-Public Use
  Company Number: US-MYLANLABS-2011S1023587

PATIENT
  Age: 53 Year
  Sex: Female
  Weight: 77.11 kg

DRUGS (21)
  1. GABAPENTIN [Concomitant]
  2. AMBIEN [Concomitant]
  3. CYCLOBENZAPRINE HCL [Concomitant]
  4. ASPIRIN [Concomitant]
  5. FERROUS SULFATE TAB [Concomitant]
  6. FENTANYL-100 [Suspect]
     Indication: BACK PAIN
     Dosage: Q 72 HOURS
     Route: 062
     Dates: start: 20100101, end: 20110101
  7. SIMVASTATIN [Concomitant]
  8. SINGULAIR [Concomitant]
  9. FENTANYL-100 [Suspect]
     Dosage: Q 72 HOURS
     Route: 062
     Dates: start: 20100101, end: 20110101
  10. ATENOLOL [Concomitant]
  11. CYMBALTA [Concomitant]
  12. ATIVAN [Concomitant]
  13. FENTANYL-100 [Suspect]
     Indication: NECK PAIN
     Dosage: Q 72 HOURS
     Route: 062
     Dates: start: 20100101, end: 20110101
  14. ONDANSETRON [Concomitant]
  15. COUMADIN [Concomitant]
  16. SEROQUEL [Concomitant]
  17. FENTANYL-100 [Suspect]
     Dosage: Q 72 HOURS
     Route: 062
     Dates: start: 20100101, end: 20110101
  18. WELLBUTRIN [Concomitant]
  19. FENOFIBRATE [Concomitant]
  20. TOPAMAX [Concomitant]
  21. REQUIP [Concomitant]

REACTIONS (2)
  - FALSE NEGATIVE INVESTIGATION RESULT [None]
  - THERAPEUTIC RESPONSE UNEXPECTED [None]
